FAERS Safety Report 5389889-X (Version None)
Quarter: 2007Q3

REPORT INFORMATION
  Report Type: 
  Country: None (occurrence: None)
  Receive Date: 20070713
  Receipt Date: 20070709
  Transmission Date: 20080115
  Serious: Yes (Disabling)
  Sender: FDA-Public Use
  Company Number: OSCN-NO-0707L-0282

PATIENT
  Age: 55 Year
  Sex: Female

DRUGS (10)
  1. OMNISCAN [Suspect]
     Indication: INTERVERTEBRAL DISCITIS
     Dosage: 10 ML, SINGLE DOSE
     Dates: start: 20020501, end: 20020501
  2. DILTIAZEM [Concomitant]
  3. WARFARIN SODIUM [Concomitant]
  4. CALCIUM CHLORIDE [Concomitant]
  5. ACETAMINOPHEN [Concomitant]
  6. METHADONE HCL [Concomitant]
  7. GABAPENTIN [Concomitant]
  8. RISEDRONATE SODIUM [Concomitant]
  9. HORMONE REPLACEMENT THERAPY [Concomitant]
  10. ARTIFICIAL TEARS [Concomitant]

REACTIONS (11)
  - ANTIPHOSPHOLIPID ANTIBODIES POSITIVE [None]
  - DRY EYE [None]
  - DRY MOUTH [None]
  - DYSPNOEA EXERTIONAL [None]
  - GASTROOESOPHAGEAL REFLUX DISEASE [None]
  - LEFT VENTRICULAR HYPERTROPHY [None]
  - MITRAL VALVE INCOMPETENCE [None]
  - NEPHROGENIC SYSTEMIC FIBROSIS [None]
  - PRURITUS [None]
  - TRICUSPID VALVE INCOMPETENCE [None]
  - ULCER [None]
